FAERS Safety Report 4753373-4 (Version None)
Quarter: 2005Q3

REPORT INFORMATION
  Report Type: 
  Country: None (occurrence: None)
  Receive Date: 20050823
  Receipt Date: 20050809
  Transmission Date: 20060218
  Serious: Yes (Other)
  Sender: FDA-Public Use
  Company Number: USA050597449

PATIENT
  Age: 10 Year
  Sex: Male
  Weight: 38 kg

DRUGS (3)
  1. STRATTERA [Suspect]
     Indication: ANXIETY
     Dosage: 40 MG
     Dates: start: 20040101
  2. LEXAPRO [Concomitant]
  3. ALLEGRA [Concomitant]

REACTIONS (5)
  - ASTHENIA [None]
  - CONVULSION [None]
  - LOSS OF CONSCIOUSNESS [None]
  - POSTICTAL PARALYSIS [None]
  - TONIC CLONIC MOVEMENTS [None]
